FAERS Safety Report 25757944 (Version 3)
Quarter: 2025Q4

REPORT INFORMATION
  Report Type: Report from Study
  Country: JP (occurrence: JP)
  Receive Date: 20250903
  Receipt Date: 20251006
  Transmission Date: 20260117
  Serious: No
  Sender: TAKEDA
  Company Number: JP-TAKEDA-2021TJP080016

PATIENT
  Age: 44 Year
  Sex: Male
  Weight: 80.7 kg

DRUGS (8)
  1. TEDUGLUTIDE [Suspect]
     Active Substance: TEDUGLUTIDE
     Indication: Short-bowel syndrome
     Dosage: 0.05 MILLIGRAM/KILOGRAM, QD
     Dates: start: 20210824, end: 20210901
  2. TEDUGLUTIDE [Suspect]
     Active Substance: TEDUGLUTIDE
     Dosage: 5 MILLIGRAM, QD
     Dates: start: 20210902, end: 20211029
  3. TEDUGLUTIDE [Suspect]
     Active Substance: TEDUGLUTIDE
     Dosage: 0.05 MILLIGRAM/KILOGRAM, QD
     Dates: start: 20211030, end: 20230416
  4. TEDUGLUTIDE [Suspect]
     Active Substance: TEDUGLUTIDE
     Dosage: 0.05 MILLIGRAM/KILOGRAM, QD
     Dates: start: 20230422, end: 20230822
  5. LOPERAMIDE [Concomitant]
     Active Substance: LOPERAMIDE
     Indication: Short-bowel syndrome
     Dosage: UNK
  6. ALBUMIN TANNATE [Concomitant]
     Active Substance: ALBUMIN TANNATE
     Indication: Short-bowel syndrome
     Dosage: UNK
  7. PAPAVER SOMNIFERUM TINCTURE [Concomitant]
     Dosage: UNK
  8. CODEINE PHOSPHATE [Concomitant]
     Active Substance: CODEINE PHOSPHATE
     Indication: Short-bowel syndrome
     Dosage: UNK

REACTIONS (2)
  - Injection site reaction [Recovering/Resolving]
  - Overdose [Recovering/Resolving]

NARRATIVE: CASE EVENT DATE: 20210824
